FAERS Safety Report 25303355 (Version 2)
Quarter: 2025Q2

REPORT INFORMATION
  Report Type: Spontaneous
  Country: JP (occurrence: JP)
  Receive Date: 20250512
  Receipt Date: 20250525
  Transmission Date: 20250716
  Serious: Yes (Death, Hospitalization, Other)
  Sender: TAKEDA
  Company Number: JP-TAKEDA-2025TJP004403

PATIENT
  Age: 8 Decade
  Sex: Male

DRUGS (1)
  1. ALUNBRIG [Suspect]
     Active Substance: BRIGATINIB
     Indication: Non-small cell lung cancer
     Dosage: 90 MILLIGRAM, QD
     Dates: start: 202504

REACTIONS (2)
  - Non-small cell lung cancer [Fatal]
  - Pulmonary toxicity [Recovering/Resolving]
